FAERS Safety Report 8668410 (Version 2)
Quarter: 2012Q4

REPORT INFORMATION
  Report Type: 
  Country: NL (occurrence: NL)
  Receive Date: 20120717
  Receipt Date: 20121103
  Transmission Date: 20130627
  Serious: Yes (Hospitalization, Other)
  Sender: FDA-Public Use
  Company Number: NL-TEVA-347321ISR

PATIENT
  Age: 53 Year
  Sex: Female

DRUGS (5)
  1. DOXORUBICIN [Suspect]
     Indication: BREAST CANCER
     Dosage: 83 Milligram Daily;
     Route: 042
     Dates: start: 20120626, end: 20120626
  2. ENDOXAN [Suspect]
     Indication: BREAST CANCER
     Dosage: 830 Milligram Daily;
     Route: 042
     Dates: start: 20120626, end: 20120626
  3. DOCETAXEL [Suspect]
     Indication: BREAST CANCER
     Dosage: 124 Milligram Daily;
     Route: 042
     Dates: start: 20120626, end: 20120626
  4. PARACETAMOL [Concomitant]
  5. NAPROXEN [Concomitant]
     Indication: GOUT
     Dates: start: 2012, end: 2012

REACTIONS (2)
  - Pancreatitis [Recovered/Resolved]
  - Abdominal discomfort [Recovered/Resolved]
